FAERS Safety Report 10173970 (Version 3)
Quarter: 2014Q2

REPORT INFORMATION
  Report Type: Spontaneous
  Country: NZ (occurrence: NZ)
  Receive Date: 20140515
  Receipt Date: 20140627
  Transmission Date: 20141212
  Serious: Yes (Hospitalization)
  Sender: FDA-Public Use
  Company Number: NZ-PFIZER INC-2014072170

PATIENT
  Age: 14 Month
  Sex: Male
  Weight: 11 kg

DRUGS (1)
  1. XYNTHA [Suspect]
     Indication: FACTOR VIII DEFICIENCY
     Dosage: 250 IU, WEEKLY
     Route: 042
     Dates: start: 20130528, end: 20131122

REACTIONS (3)
  - Factor VIII inhibition [Not Recovered/Not Resolved]
  - Haemorrhage [Recovered/Resolved]
  - Laceration [Recovered/Resolved]
